FAERS Safety Report 21266366 (Version 1)
Quarter: 2022Q3

REPORT INFORMATION
  Report Type: Report from Study
  Country: AU (occurrence: AU)
  Receive Date: 20220829
  Receipt Date: 20220829
  Transmission Date: 20221027
  Serious: Yes (Hospitalization)
  Sender: FDA-Public Use
  Company Number: AU-ABBVIE-22K-008-4515872-00

PATIENT
  Sex: Female

DRUGS (2)
  1. CARBIDOPA\LEVODOPA [Suspect]
     Active Substance: CARBIDOPA\LEVODOPA
     Indication: Parkinson^s disease
     Route: 050
     Dates: start: 20220111
  2. CARBIDOPA\LEVODOPA [Suspect]
     Active Substance: CARBIDOPA\LEVODOPA

REACTIONS (8)
  - Arterial disorder [Unknown]
  - Cogwheel rigidity [Unknown]
  - Tardive dyskinesia [Unknown]
  - Amnesia [Unknown]
  - Cognitive disorder [Unknown]
  - Fine motor skill dysfunction [Unknown]
  - Gait disturbance [Unknown]
  - Functional residual capacity decreased [Unknown]

NARRATIVE: CASE EVENT DATE: 20220101
